FAERS Safety Report 20926052 (Version 1)
Quarter: 2022Q2

REPORT INFORMATION
  Report Type: Spontaneous
  Country: US (occurrence: US)
  Receive Date: 20220607
  Receipt Date: 20220607
  Transmission Date: 20220721
  Serious: No
  Sender: FDA-Public Use
  Company Number: US-PERRIGO-21US008409

PATIENT
  Age: 75 Year
  Sex: Female
  Weight: 58.503 kg

DRUGS (3)
  1. MINOXIDIL [Suspect]
     Active Substance: MINOXIDIL
     Indication: Alopecia
     Dosage: 2/3 OF CAPFUL, QD
     Route: 061
     Dates: start: 201912, end: 202105
  2. MINOXIDIL [Suspect]
     Active Substance: MINOXIDIL
     Dosage: MORE THAN 2/3 OF CAPFUL, QD
     Route: 061
     Dates: start: 202105
  3. ELIQUIS [Concomitant]
     Active Substance: APIXABAN
     Indication: Thrombosis
     Dosage: UNKNOWN, UNKNOWN
     Route: 065
     Dates: start: 202102, end: 20210603

REACTIONS (3)
  - Incorrect dose administered [Unknown]
  - Wrong technique in product usage process [Unknown]
  - Product administered at inappropriate site [Unknown]

NARRATIVE: CASE EVENT DATE: 20191201
